FAERS Safety Report 9115969 (Version 1)
Quarter: 2013Q1

REPORT INFORMATION
  Report Type: Spontaneous
  Country: GB (occurrence: GB)
  Receive Date: 20130225
  Receipt Date: 20130225
  Transmission Date: 20140127
  Serious: Yes (Other)
  Sender: FDA-Public Use
  Company Number: GB-BAYER-2013-023558

PATIENT
  Age: 7 Year
  Sex: Female

DRUGS (2)
  1. CANESTEN [Suspect]
     Indication: EAR INFECTION
     Dosage: UNK
     Route: 001
     Dates: start: 201302
  2. FLUCLOXACILLIN [Concomitant]

REACTIONS (2)
  - Ear pain [None]
  - Ear haemorrhage [None]
